FAERS Safety Report 18254089 (Version 3)
Quarter: 2023Q2

REPORT INFORMATION
  Report Type: Spontaneous
  Country: US (occurrence: US)
  Receive Date: 20200910
  Receipt Date: 20230511
  Transmission Date: 20230722
  Serious: Yes (Other)
  Sender: FDA-Public Use
  Company Number: US-JNJFOC-20200847143

PATIENT
  Age: 4 Decade
  Sex: Female

DRUGS (5)
  1. ELMIRON [Suspect]
     Active Substance: PENTOSAN POLYSULFATE SODIUM
     Indication: Bladder pain
     Route: 048
     Dates: start: 1997, end: 2016
  2. ELMIRON [Suspect]
     Active Substance: PENTOSAN POLYSULFATE SODIUM
     Indication: Cystitis interstitial
     Route: 048
     Dates: end: 2019
  3. ASPIRIN [Concomitant]
     Active Substance: ASPIRIN
  4. FLEXERIL [Concomitant]
     Active Substance: CYCLOBENZAPRINE HYDROCHLORIDE
  5. ESTRADIOL [Concomitant]
     Active Substance: ESTRADIOL

REACTIONS (1)
  - Maculopathy [Recovering/Resolving]

NARRATIVE: CASE EVENT DATE: 20000101
